FAERS Safety Report 9293227 (Version 1)
Quarter: 2013Q2

REPORT INFORMATION
  Report Type: Spontaneous
  Country: US (occurrence: US)
  Receive Date: 20130516
  Receipt Date: 20130516
  Transmission Date: 20140414
  Serious: No
  Sender: FDA-Public Use
  Company Number: US-PFIZER INC-2013150419

PATIENT
  Age: 72 Year
  Sex: Female
  Weight: 63.49 kg

DRUGS (2)
  1. XELJANZ [Suspect]
     Indication: ARTHRITIS
     Dosage: 5 MG, 2X/DAY
     Route: 048
     Dates: start: 20130331, end: 201305
  2. VERAPAMIL [Concomitant]
     Indication: HYPERTENSION
     Dosage: 20 MG (10 PILLS OF 2MG EACH), WEEKLY

REACTIONS (1)
  - Diarrhoea [Recovered/Resolved]
